FAERS Safety Report 12797469 (Version 1)
Quarter: 2016Q3

REPORT INFORMATION
  Report Type: Report from Study
  Country: US (occurrence: US)
  Receive Date: 20160930
  Receipt Date: 20160930
  Transmission Date: 20161109
  Serious: Yes (Hospitalization, Other)
  Sender: FDA-Public Use
  Company Number: US-ROCHE-1038398

PATIENT
  Age: 64 Year
  Sex: Female
  Weight: 129.7 kg

DRUGS (9)
  1. IXABEPILONE [Suspect]
     Active Substance: IXABEPILONE
     Dosage: COARSE 1
     Route: 042
     Dates: start: 20111103, end: 20111215
  2. IXABEPILONE [Suspect]
     Active Substance: IXABEPILONE
     Dosage: COARSE 3
     Route: 042
     Dates: start: 20111215, end: 20111215
  3. CARBOPLATIN. [Suspect]
     Active Substance: CARBOPLATIN
     Indication: ENDOMETRIAL ADENOCARCINOMA
     Dosage: 5 AUC
     Route: 042
     Dates: start: 20111103, end: 20120125
  4. IXABEPILONE [Suspect]
     Active Substance: IXABEPILONE
     Dosage: COARSE 2
     Route: 042
     Dates: start: 20111123, end: 20111215
  5. BEVACIZUMAB [Suspect]
     Active Substance: BEVACIZUMAB
     Dosage: COARSE 1
     Route: 042
     Dates: start: 20111103, end: 20111215
  6. IXABEPILONE [Suspect]
     Active Substance: IXABEPILONE
     Indication: ENDOMETRIAL ADENOCARCINOMA
     Route: 042
     Dates: start: 20111103, end: 20120125
  7. BEVACIZUMAB [Suspect]
     Active Substance: BEVACIZUMAB
     Dosage: COARSE 3
     Route: 042
     Dates: start: 20111215, end: 20111215
  8. BEVACIZUMAB [Suspect]
     Active Substance: BEVACIZUMAB
     Indication: ENDOMETRIAL ADENOCARCINOMA
     Route: 042
     Dates: start: 20111103, end: 20120125
  9. BEVACIZUMAB [Suspect]
     Active Substance: BEVACIZUMAB
     Dosage: COARSE 2
     Route: 042
     Dates: start: 20111123, end: 20111215

REACTIONS (8)
  - Female genital tract fistula [Not Recovered/Not Resolved]
  - Anaemia [Unknown]
  - Anal fistula [Recovered/Resolved]
  - Fatigue [Unknown]
  - Neutrophil count decreased [Unknown]
  - White blood cell count decreased [Unknown]
  - Anal fistula [Unknown]
  - Fatigue [Recovered/Resolved]

NARRATIVE: CASE EVENT DATE: 20111219
